FAERS Safety Report 9882714 (Version 1)
Quarter: 2014Q1

REPORT INFORMATION
  Report Type: Spontaneous
  Country: US (occurrence: US)
  Receive Date: 20140207
  Receipt Date: 20140207
  Transmission Date: 20141002
  Serious: Yes (Other)
  Sender: FDA-Public Use
  Company Number: US-MPIJNJ-2014MPI000351

PATIENT
  Sex: 0

DRUGS (3)
  1. VELCADE [Suspect]
  2. THALIDOMIDE [Suspect]
     Dosage: FOR 2 YEARS
  3. CHEMOTHERAPEUTICS [Suspect]

REACTIONS (2)
  - Skin cancer [Unknown]
  - Neuropathy peripheral [Unknown]
